FAERS Safety Report 6632873-6 (Version None)
Quarter: 2010Q1

REPORT INFORMATION
  Report Type: 
  Country: None (occurrence: None)
  Receive Date: 20100312
  Receipt Date: 20100209
  Transmission Date: 20100710
  Serious: No
  Sender: FDA-Public Use
  Company Number: US-BIOGENIDEC-2010BI004715

PATIENT
  Sex: Male

DRUGS (7)
  1. AVONEX [Suspect]
     Indication: MULTIPLE SCLEROSIS
     Route: 030
     Dates: start: 20091219
  2. MARIJUANA [Concomitant]
  3. AMBIEN [Concomitant]
  4. FLEXERIL [Concomitant]
  5. XANAX [Concomitant]
  6. ANADROL [Concomitant]
  7. TRAMADOL HCL [Concomitant]

REACTIONS (14)
  - BIPOLAR DISORDER [None]
  - CONFUSIONAL STATE [None]
  - DEPRESSED MOOD [None]
  - HEADACHE [None]
  - HYPOAESTHESIA [None]
  - INFLUENZA LIKE ILLNESS [None]
  - INSOMNIA [None]
  - MEMORY IMPAIRMENT [None]
  - MOBILITY DECREASED [None]
  - MUSCULOSKELETAL STIFFNESS [None]
  - SCREAMING [None]
  - SKELETAL INJURY [None]
  - SUICIDAL IDEATION [None]
  - VISUAL ACUITY REDUCED [None]
